FAERS Safety Report 14899907 (Version 5)
Quarter: 2018Q3

REPORT INFORMATION
  Report Type: Spontaneous
  Country: EG (occurrence: EG)
  Receive Date: 20180516
  Receipt Date: 20180918
  Transmission Date: 20181010
  Serious: Yes (Other)
  Sender: FDA-Public Use
  Company Number: PHHY2018EG006064

PATIENT
  Sex: Female

DRUGS (1)
  1. VIGAMOX [Suspect]
     Active Substance: MOXIFLOXACIN HYDROCHLORIDE
     Indication: ULCERATIVE KERATITIS
     Dosage: UNK, QID
     Route: 047
     Dates: start: 20180507

REACTIONS (15)
  - Corneal epithelium defect [Recovered/Resolved]
  - Product quality issue [Unknown]
  - Ulcerative keratitis [Recovered/Resolved]
  - Corneal abscess [Recovered/Resolved]
  - Conjunctival hyperaemia [Recovered/Resolved]
  - Ocular hyperaemia [Recovered/Resolved]
  - Corneal infiltrates [Recovered/Resolved]
  - Conjunctival oedema [Recovered/Resolved]
  - Eye pain [Recovered/Resolved]
  - Corneal neovascularisation [Recovered/Resolved]
  - Hypopyon [Recovered/Resolved]
  - Foreign body sensation in eyes [Recovered/Resolved]
  - Corneal deposits [Recovered/Resolved]
  - Ciliary hyperaemia [Recovered/Resolved]
  - Suspected counterfeit product [Unknown]

NARRATIVE: CASE EVENT DATE: 20180507
